FAERS Safety Report 4502172-7 (Version None)
Quarter: 2004Q4

REPORT INFORMATION
  Report Type: 
  Country: None (occurrence: None)
  Receive Date: 20041116
  Receipt Date: 20040702
  Transmission Date: 20050328
  Serious: Yes (Hospitalization)
  Sender: FDA-Public Use
  Company Number: GB-ROCHE-372709

PATIENT
  Age: 71 Year
  Sex: Male
  Weight: 81 kg

DRUGS (6)
  1. CAPECITABINE [Suspect]
     Dosage: GIVEN FROM DAYS ONE TO FOURTEEN OF A THREE WEEK CYCLE.
     Route: 048
     Dates: end: 20040909
  2. GEMCITABINE [Suspect]
     Dosage: GIVEN ON DAYS ONE AND EIGHT OF A THREE WEEK CYCLE.
     Route: 042
     Dates: end: 20040909
  3. OXYCONTIN [Concomitant]
     Route: 048
  4. OXYNORM [Concomitant]
     Dosage: TAKEN PRN
     Route: 048
  5. ZOPICLONE [Concomitant]
     Route: 048
  6. FYBOGEL [Concomitant]
     Dosage: TAKEN PRN
     Route: 048

REACTIONS (8)
  - BLOOD BILIRUBIN INCREASED [None]
  - CONSTIPATION [None]
  - LEUKOPENIA [None]
  - NAUSEA [None]
  - NEUTROPENIA [None]
  - PYREXIA [None]
  - SEPSIS [None]
  - STENT OCCLUSION [None]
